FAERS Safety Report 14045651 (Version 1)
Quarter: 2017Q4

REPORT INFORMATION
  Report Type: Spontaneous
  Country: JP (occurrence: JP)
  Receive Date: 20171005
  Receipt Date: 20171005
  Transmission Date: 20180321
  Serious: Yes (Hospitalization, Other)
  Sender: FDA-Public Use
  Company Number: JP-EMD SERONO-8169945

PATIENT
  Age: 4 Decade
  Sex: Female

DRUGS (3)
  1. GONAL-F RFF [Suspect]
     Active Substance: FOLLITROPIN
     Indication: OVULATION INDUCTION
     Dosage: FROM DAY 0 TO DAY 6
     Route: 058
  2. CABASER [Concomitant]
     Active Substance: CABERGOLINE
     Indication: PROPHYLAXIS
     Route: 048
  3. GONAL-F RFF [Suspect]
     Active Substance: FOLLITROPIN
     Dosage: FROM DAY 8 TO DAY 16
     Route: 058

REACTIONS (2)
  - Ovarian hyperstimulation syndrome [Recovered/Resolved]
  - Abortion spontaneous [Recovered/Resolved]
